FAERS Safety Report 7091724-9 (Version None)
Quarter: 2010Q4

REPORT INFORMATION
  Report Type: 
  Country: None (occurrence: None)
  Receive Date: 20101109
  Receipt Date: 20090910
  Transmission Date: 20110411
  Serious: No
  Sender: FDA-Public Use
  Company Number: US-KINGPHARMUSA00001-K200901116

PATIENT
  Age: 50 Year
  Sex: Female
  Weight: 74.83 kg

DRUGS (3)
  1. FLECTOR [Suspect]
     Indication: BACK PAIN
     Dosage: 2 PATCH, UNK
     Route: 061
     Dates: start: 20090909, end: 20090909
  2. MOTRIN [Concomitant]
     Indication: BACK PAIN
     Dosage: UNK, PRN
     Route: 048
  3. MULTI-VITAMIN [Concomitant]
     Dosage: UNK, QD
     Route: 048

REACTIONS (3)
  - DRUG DIVERSION [None]
  - NAUSEA [None]
  - VOMITING [None]
